FAERS Safety Report 4996892-8 (Version None)
Quarter: 2006Q2

REPORT INFORMATION
  Report Type: 
  Country: None (occurrence: None)
  Receive Date: 20060509
  Receipt Date: 20060502
  Transmission Date: 20061013
  Serious: Yes (Other)
  Sender: FDA-Public Use
  Company Number: US-GLAXOSMITHKLINE-A0604067A

PATIENT
  Age: 60 Year
  Sex: Female

DRUGS (4)
  1. AVANDAMET [Suspect]
     Route: 048
     Dates: start: 20051201, end: 20060301
  2. AVANDIA [Suspect]
     Dosage: 4MG PER DAY
     Route: 048
     Dates: start: 20060301
  3. METFORMIN [Suspect]
     Dosage: 500MG PER DAY
     Route: 048
     Dates: start: 20060301
  4. DIOVAN [Concomitant]

REACTIONS (4)
  - BLOOD GLUCOSE INCREASED [None]
  - DIABETES MELLITUS INADEQUATE CONTROL [None]
  - GLYCOSYLATED HAEMOGLOBIN INCREASED [None]
  - NASOPHARYNGITIS [None]
